FAERS Safety Report 4730186-0 (Version None)
Quarter: 2005Q3

REPORT INFORMATION
  Report Type: 
  Country: None (occurrence: None)
  Receive Date: 20050801
  Receipt Date: 20050630
  Transmission Date: 20060218
  Serious: Yes (Other)
  Sender: FDA-Public Use
  Company Number: GB-GLAXOSMITHKLINE-B0386421A

PATIENT
  Age: 67 Year
  Sex: Male
  Weight: 92 kg

DRUGS (5)
  1. AVODART [Suspect]
     Route: 048
  2. FLOMAX [Concomitant]
  3. ACETAMINOPHEN W/ CODEINE [Concomitant]
  4. ASPIRIN [Concomitant]
  5. UNSPECIFIED MEDICATION [Concomitant]

REACTIONS (1)
  - ANGIONEUROTIC OEDEMA [None]
